FAERS Safety Report 4699014-6 (Version None)
Quarter: 2005Q2

REPORT INFORMATION
  Report Type: 
  Country: None (occurrence: None)
  Receive Date: 20050624
  Receipt Date: 20050616
  Transmission Date: 20051028
  Serious: Yes (Other)
  Sender: FDA-Public Use
  Company Number: US-KINGPHARMUSA00001-K200500847

PATIENT
  Sex: Male

DRUGS (4)
  1. FLORINEF [Suspect]
  2. ZOTON [Suspect]
     Route: 048
  3. HYDROCORTISONE [Concomitant]
  4. VITAMINS [Concomitant]

REACTIONS (1)
  - BLOOD POTASSIUM INCREASED [None]
